FAERS Safety Report 10241870 (Version 1)
Quarter: 2014Q2

REPORT INFORMATION
  Report Type: Spontaneous
  Country: US (occurrence: US)
  Receive Date: 20140617
  Receipt Date: 20140617
  Transmission Date: 20141212
  Serious: No
  Sender: FDA-Public Use
  Company Number: US-BAYER-2014-082258

PATIENT
  Age: 38 Year
  Sex: Female

DRUGS (8)
  1. ALEVE CAPLET [Suspect]
     Indication: PRODUCT USED FOR UNKNOWN INDICATION
  2. IBUPROFEN [Suspect]
     Dosage: UNK
     Route: 065
  3. HYDROCODONE [Suspect]
     Indication: CROHN^S DISEASE
  4. TYLENOL [PARACETAMOL] [Suspect]
     Indication: PRODUCT USED FOR UNKNOWN INDICATION
  5. HUMIRA [Concomitant]
     Indication: CROHN^S DISEASE
     Dosage: UNK
     Route: 065
     Dates: start: 20140402
  6. PRILOSEC [Concomitant]
     Indication: GASTRIC DISORDER
     Dosage: 40 MG, QD
  7. VALIUM [Concomitant]
     Indication: INSOMNIA
     Dosage: 10 MG, QD
  8. ENTOCORT [Concomitant]
     Indication: CROHN^S DISEASE
     Dosage: 225 MG, QD

REACTIONS (4)
  - Drug ineffective [Unknown]
  - Migraine [Recovered/Resolved]
  - Paraesthesia mucosal [Recovered/Resolved]
  - Pain in extremity [Recovered/Resolved]
